FAERS Safety Report 17824272 (Version 3)
Quarter: 2021Q4

REPORT INFORMATION
  Report Type: Spontaneous
  Country: US (occurrence: US)
  Receive Date: 20200526
  Receipt Date: 20211123
  Transmission Date: 20220303
  Serious: Yes (Hospitalization)
  Sender: FDA-Public Use
  Company Number: US-VERTEX PHARMACEUTICALS-2020-011432

PATIENT
  Age: 23 Year
  Sex: Female

DRUGS (33)
  1. TRIKAFTA [Suspect]
     Active Substance: ELEXACAFTOR\IVACAFTOR\TEZACAFTOR
     Indication: Cystic fibrosis
     Dosage: 2 TABS IN AM, 1 TAB IN PM
     Route: 048
     Dates: start: 201912
  2. CAYSTON [Concomitant]
     Active Substance: AZTREONAM
  3. MEPHYTON [Concomitant]
     Active Substance: PHYTONADIONE
  4. FERROUS SULFATE [Concomitant]
     Active Substance: FERROUS SULFATE
     Dosage: 325MG, ONCE EACH DAY
     Route: 048
  5. SODIUM CHLORIDE [Concomitant]
     Active Substance: SODIUM CHLORIDE
  6. OMEPRAZOLE [Concomitant]
     Active Substance: OMEPRAZOLE
     Dosage: 1 CAP, 20MG, QD
     Route: 048
  7. CALCIUM CITRATE [Concomitant]
     Active Substance: CALCIUM CITRATE
  8. ZENPEP [Concomitant]
     Active Substance: PANCRELIPASE AMYLASE\PANCRELIPASE LIPASE\PANCRELIPASE PROTEASE
  9. FISH OIL [Concomitant]
     Active Substance: FISH OIL
     Dosage: 3 CAPS, TID WITH MEALS
     Route: 048
  10. MONTELUKAST [Concomitant]
     Active Substance: MONTELUKAST SODIUM
     Dosage: 10 MG, 1 TABLET
     Route: 048
  11. FLAX OIL [LINUM USITATISSIMUM OIL] [Concomitant]
     Dosage: 5 CAPS, TID WITH MEALS
     Route: 048
  12. ALBUTEROL SULFATE [Concomitant]
     Active Substance: ALBUTEROL SULFATE
     Indication: Wheezing
     Dosage: 90 MCG/ ACTUATION, 2 PUFFS, PRN
  13. ALBUTEROL SULFATE [Concomitant]
     Active Substance: ALBUTEROL SULFATE
     Indication: Dyspnoea
  14. ALBUTEROL [Concomitant]
     Active Substance: ALBUTEROL
     Indication: Wheezing
     Dosage: 2.5MG/3ML, PRN
     Route: 055
  15. ARFORMOTEROL [Concomitant]
     Active Substance: ARFORMOTEROL
     Dosage: 15MCG/2ML, BID
     Route: 055
  16. AZITHROMYCIN [Concomitant]
     Active Substance: AZITHROMYCIN
     Dosage: 500 MG, TID
     Route: 048
  17. AZTREONAM LYSINE [Concomitant]
     Active Substance: AZTREONAM LYSINE
     Dosage: CYCLE 28 DAYS ON AND OFF
     Route: 055
  18. CALCITRIOL [Concomitant]
     Active Substance: CALCITRIOL
     Dosage: 1 CAP, QD
     Route: 048
  19. CALCIUM CARBONATE\CHOLECALCIFEROL [Concomitant]
     Active Substance: CALCIUM CARBONATE\CHOLECALCIFEROL
     Dosage: 1 TAB, 500MG (1250MG)- 600 UNITS, QD
     Route: 048
  20. CHOLECALCIFEROL [Concomitant]
     Active Substance: CHOLECALCIFEROL
     Dosage: 1 TAB, QD
     Route: 048
  21. COPPER GLUCONATE [Concomitant]
     Active Substance: COPPER GLUCONATE
     Dosage: 1 TAB, DAILY
     Route: 048
  22. PULMOZYME [Concomitant]
     Active Substance: DORNASE ALFA
     Dosage: 2.5ML, ONCE EACH DAY
     Route: 055
  23. FLUTICASONE PROPIONATE [Concomitant]
     Active Substance: FLUTICASONE PROPIONATE
     Dosage: 50MCG/ ACTUATION, 1 SPRAY, DAILY
     Route: 045
  24. HEPARIN [Concomitant]
     Active Substance: HEPARIN SODIUM
     Dosage: 100 UNIT/ ML
     Route: 042
  25. PANCREAZE [Concomitant]
     Active Substance: PANCRELIPASE AMYLASE\PANCRELIPASE LIPASE\PANCRELIPASE PROTEASE
     Dosage: 21000, 54700, 83900 UNIT
     Route: 048
  26. PHYTONADIONE [Concomitant]
     Active Substance: PHYTONADIONE
     Dosage: 1 TAB, 5MG, QD
     Route: 048
  27. SELENIUM [Concomitant]
     Active Substance: SELENIUM
     Dosage: 1 CAP, 200MCG, QD
     Route: 048
  28. SODIUM CHLORIDE [Concomitant]
     Active Substance: SODIUM CHLORIDE
     Dosage: 10ML, 0.9%
     Route: 042
  29. SODIUM CHLORIDE [Concomitant]
     Active Substance: SODIUM CHLORIDE
     Dosage: 7%, 4ML
     Route: 055
  30. SODIUM BICARBONATE [Concomitant]
     Active Substance: SODIUM BICARBONATE
  31. SULFAMETHOXAZOLE AND TRIMETHOPRIM [Concomitant]
     Active Substance: SULFAMETHOXAZOLE\TRIMETHOPRIM
     Dosage: 1 TAB, BID
     Route: 048
  32. VITAMIN D3 [Concomitant]
     Active Substance: CHOLECALCIFEROL
     Dosage: 125MCG, 1 TAB, QD
     Route: 048
  33. TOCOPHEROL ACETATE [TOCOPHEROL] [Concomitant]
     Dosage: 400 UNIT, 1 CAP, QD
     Route: 048

REACTIONS (3)
  - Lower respiratory tract infection [Recovered/Resolved]
  - Staphylococcal infection [Unknown]
  - Pseudomonas infection [Unknown]

NARRATIVE: CASE EVENT DATE: 20200404
